FAERS Safety Report 9749652 (Version 3)
Quarter: 2013Q4

REPORT INFORMATION
  Report Type: Spontaneous
  Country: EG (occurrence: EG)
  Receive Date: 20131212
  Receipt Date: 20131230
  Transmission Date: 20140711
  Serious: Yes (Hospitalization)
  Sender: FDA-Public Use
  Company Number: PHHY2013EG136971

PATIENT
  Age: 55 Year
  Sex: Male
  Weight: 92 kg

DRUGS (3)
  1. CERTICAN [Suspect]
     Indication: IMMUNOSUPPRESSION
     Dosage: 0.75 UKN, BID
     Route: 048
     Dates: start: 201308, end: 20130910
  2. NEORAL [Concomitant]
     Indication: IMMUNOSUPPRESSION
     Dosage: 100 UKN, BID
     Route: 048
  3. MYFORTIC [Concomitant]
     Indication: IMMUNOSUPPRESSION
     Dosage: 360 UKN, BID
     Route: 048

REACTIONS (2)
  - Ascites [Recovered/Resolved]
  - Incisional hernia [Unknown]
